FAERS Safety Report 21274795 (Version 1)
Quarter: 2022Q3

REPORT INFORMATION
  Report Type: Spontaneous
  Country: US (occurrence: US)
  Receive Date: 20220831
  Receipt Date: 20220831
  Transmission Date: 20221026
  Serious: No
  Sender: FDA-Public Use
  Company Number: US-AMERICAN REGENT INC-2021002289

PATIENT
  Age: 36 Year
  Sex: Female

DRUGS (2)
  1. INJECTAFER [Suspect]
     Active Substance: FERRIC CARBOXYMALTOSE
     Indication: Microcytic anaemia
     Dosage: 750 MILLIGRAM IN 100 ML NS
     Route: 042
     Dates: start: 20210712, end: 20210712
  2. INJECTAFER [Suspect]
     Active Substance: FERRIC CARBOXYMALTOSE
     Dosage: UNK UNK
     Route: 065
     Dates: start: 20210702, end: 20210702

REACTIONS (2)
  - Nausea [Recovered/Resolved]
  - Product use in unapproved indication [Unknown]

NARRATIVE: CASE EVENT DATE: 20210702
